FAERS Safety Report 10027678 (Version 4)
Quarter: 2015Q2

REPORT INFORMATION
  Report Type: Spontaneous
  Country: US (occurrence: US)
  Receive Date: 20140321
  Receipt Date: 20150616
  Transmission Date: 20150821
  Serious: Yes (Hospitalization, Other)
  Sender: FDA-Public Use
  Company Number: US-SANOFI-AVENTIS-2012SA003221

PATIENT
  Age: 67 Year
  Sex: Male

DRUGS (16)
  1. ASPIRIN. [Suspect]
     Active Substance: ASPIRIN
     Route: 065
  2. LITHIUM. [Concomitant]
     Active Substance: LITHIUM
     Dosage: 300 MG AT NIGHTTIME AND 450 MG IN THE MORNING
  3. NASONEX [Concomitant]
     Active Substance: MOMETASONE FUROATE
     Route: 045
  4. PLAVIX [Suspect]
     Active Substance: CLOPIDOGREL BISULFATE
     Indication: PERIPHERAL ARTERIAL OCCLUSIVE DISEASE
     Route: 048
     Dates: start: 2005, end: 20100613
  5. LORTAB [Concomitant]
     Active Substance: ACETAMINOPHEN\HYDROCODONE BITARTRATE
     Indication: PAIN
     Route: 048
  6. FISH OIL [Concomitant]
     Active Substance: FISH OIL
     Route: 048
  7. GLUCAGON. [Concomitant]
     Active Substance: GLUCAGON
     Route: 048
  8. SENNA [Concomitant]
     Active Substance: SENNA LEAF\SENNOSIDES\SENNOSIDES A AND B
     Route: 048
  9. ZETIA [Concomitant]
     Active Substance: EZETIMIBE
     Route: 048
  10. LISINOPRIL. [Concomitant]
     Active Substance: LISINOPRIL
  11. METOPROLOL TARTRATE. [Concomitant]
     Active Substance: METOPROLOL TARTRATE
     Route: 048
  12. PHENERGAN [Concomitant]
     Active Substance: PROMETHAZINE HYDROCHLORIDE
     Route: 048
  13. DOCUSATE SODIUM. [Concomitant]
     Active Substance: DOCUSATE SODIUM
     Route: 048
  14. RISPERDAL [Concomitant]
     Active Substance: RISPERIDONE
     Route: 048
  15. ULTRAM [Concomitant]
     Active Substance: TRAMADOL HYDROCHLORIDE
     Route: 048
  16. PLAVIX [Suspect]
     Active Substance: CLOPIDOGREL BISULFATE
     Indication: STENT PLACEMENT
     Route: 048
     Dates: start: 2005, end: 20100613

REACTIONS (7)
  - Gastrointestinal haemorrhage [Unknown]
  - Proctalgia [Unknown]
  - Haematochezia [Unknown]
  - Injury [Unknown]
  - Haemorrhoids [Recovered/Resolved]
  - Haemorrhagic anaemia [Recovered/Resolved]
  - Rectal haemorrhage [Unknown]

NARRATIVE: CASE EVENT DATE: 20100406
